FAERS Safety Report 5647971-3 (Version None)
Quarter: 2008Q1

REPORT INFORMATION
  Report Type: 
  Country: None (occurrence: None)
  Receive Date: 20080228
  Receipt Date: 20080214
  Transmission Date: 20080703
  Serious: Yes (Hospitalization, Disabling)
  Sender: FDA-Public Use
  Company Number: 231606J08USA

PATIENT
  Age: 60 Year
  Sex: Female
  Weight: 54.4316 kg

DRUGS (1)
  1. REBIF [Suspect]
     Indication: MULTIPLE SCLEROSIS
     Dosage: 44 MCG, 3 IN 1 WEEKS, SUBCUTANEOUS
     Route: 058
     Dates: start: 20060601

REACTIONS (11)
  - BEDRIDDEN [None]
  - CATHETER RELATED COMPLICATION [None]
  - DECUBITUS ULCER [None]
  - HAEMORRHAGE [None]
  - LOSS OF CONSCIOUSNESS [None]
  - MUSCLE SPASMS [None]
  - PAIN [None]
  - PYREXIA [None]
  - RECTAL OBSTRUCTION [None]
  - URINARY SEDIMENT PRESENT [None]
  - URINARY TRACT INFECTION [None]
